FAERS Safety Report 9511201 (Version 1)
Quarter: 2013Q1

REPORT INFORMATION
  Report Type: Spontaneous
  Country: US (occurrence: None)
  Receive Date: 20130305
  Receipt Date: 20130305
  Transmission Date: 20140127
  Serious: Yes (Other)
  Sender: FDA-Public Use
  Company Number: 163-21880-12122286

PATIENT
  Age: 68 Year
  Sex: Female
  Weight: 74.39 kg

DRUGS (7)
  1. REVLIMID [Suspect]
     Indication: PLASMA CELL MYELOMA
     Dosage: 5 MG, 1 IN 1 D, PO
     Route: 048
     Dates: start: 20110601
  2. PRAVASTATIN [Suspect]
     Indication: PLASMA CELL MYELOMA
     Dates: start: 201211, end: 201212
  3. ADULT LOW DOSE ASPIRIN (ACETYLSALICYLIC ACID) [Concomitant]
  4. NEURONTIN (GABAPENTIN) [Concomitant]
  5. NORVASC (AMLODIPINE BESILATE) [Concomitant]
  6. OXYCODONE HCL (OXYCODONE HYDROCHLORIDE) [Concomitant]
  7. PRILOSEC [Concomitant]

REACTIONS (4)
  - Diarrhoea [None]
  - Muscle spasms [None]
  - Constipation [None]
  - Musculoskeletal pain [None]
